FAERS Safety Report 6135030-5 (Version None)
Quarter: 2009Q1

REPORT INFORMATION
  Report Type: 
  Country: None (occurrence: None)
  Receive Date: 20090327
  Receipt Date: 20090316
  Transmission Date: 20090719
  Serious: Yes (Hospitalization)
  Sender: FDA-Public Use
  Company Number: JP-PFIZER INC-2009187716

PATIENT

DRUGS (2)
  1. TOPOTECIN [Suspect]
     Indication: OVARIAN CANCER
     Dosage: 140 MG
     Route: 041
     Dates: start: 20081216, end: 20090226
  2. MITOMYCIN [Concomitant]
     Indication: OVARIAN CANCER

REACTIONS (1)
  - PULMONARY FIBROSIS [None]
